FAERS Safety Report 16371478 (Version 2)
Quarter: 2021Q1

REPORT INFORMATION
  Report Type: Report from Study
  Country: JP (occurrence: JP)
  Receive Date: 20190530
  Receipt Date: 20210309
  Transmission Date: 20210419
  Serious: Yes (Hospitalization)
  Sender: FDA-Public Use
  Company Number: JP-ROCHE-2327485

PATIENT
  Age: 17 Year
  Sex: Female

DRUGS (6)
  1. RITUXIMAB. [Suspect]
     Active Substance: RITUXIMAB
     Indication: NEPHROTIC SYNDROME
     Route: 041
     Dates: start: 20180323, end: 20180323
  2. RITUXIMAB. [Suspect]
     Active Substance: RITUXIMAB
     Route: 041
     Dates: start: 20180405, end: 20180405
  3. RITUXIMAB. [Suspect]
     Active Substance: RITUXIMAB
     Route: 041
     Dates: start: 20180330, end: 20180330
  4. BLINDED MYCOPHENOLATE MOFETIL [Suspect]
     Active Substance: MYCOPHENOLATE MOFETIL
     Indication: NEPHROTIC SYNDROME
     Route: 048
     Dates: start: 20180414, end: 20190529
  5. BAKTAR [Concomitant]
     Active Substance: SULFAMETHOXAZOLE\TRIMETHOPRIM
     Indication: PROPHYLAXIS
     Route: 048
     Dates: start: 20180511, end: 20180515
  6. RITUXIMAB. [Suspect]
     Active Substance: RITUXIMAB
     Route: 041
     Dates: start: 20180413, end: 20180413

REACTIONS (13)
  - Oropharyngeal pain [Recovered/Resolved]
  - Acne [Not Recovered/Not Resolved]
  - Influenza [Recovered/Resolved]
  - Skin abrasion [Recovered/Resolved]
  - Influenza [Recovered/Resolved]
  - Arthralgia [Recovered/Resolved]
  - Upper respiratory tract inflammation [Recovered/Resolved]
  - Alopecia [Recovered/Resolved]
  - Eczema [Recovered/Resolved]
  - Animal bite [Recovered/Resolved]
  - Hair colour changes [Recovered/Resolved]
  - Stomatitis [Recovered/Resolved]
  - Dysmenorrhoea [Recovered/Resolved]

NARRATIVE: CASE EVENT DATE: 20180328
